FAERS Safety Report 4418355-0 (Version None)
Quarter: 2004Q3

REPORT INFORMATION
  Report Type: 
  Country: None (occurrence: None)
  Receive Date: 20040809
  Receipt Date: 20040608
  Transmission Date: 20050211
  Serious: No
  Sender: FDA-Public Use
  Company Number: US-GLAXOSMITHKLINE-A0513826A

PATIENT
  Sex: Female

DRUGS (10)
  1. PAXIL CR [Suspect]
     Dosage: 25MG PER DAY
     Route: 048
     Dates: start: 20030101
  2. ZOCOR [Concomitant]
  3. LASIX [Concomitant]
  4. CELEBREX [Concomitant]
  5. LEVOTHROID [Concomitant]
  6. ALUPENT [Concomitant]
  7. ELAVIL [Concomitant]
  8. ZANTAC [Concomitant]
  9. VALIUM [Concomitant]
  10. NITROGLYCERIN [Concomitant]

REACTIONS (2)
  - CONFUSIONAL STATE [None]
  - IMPAIRED SELF-CARE [None]
